FAERS Safety Report 6186790-9 (Version None)
Quarter: 2009Q2

REPORT INFORMATION
  Report Type: 
  Country: None (occurrence: None)
  Receive Date: 20090508
  Receipt Date: 20090430
  Transmission Date: 20091009
  Serious: Yes (Other)
  Sender: FDA-Public Use
  Company Number: 2009S1001860

PATIENT
  Age: 61 Year
  Sex: Female

DRUGS (18)
  1. PHOSPHOSODA FLAVOR NOT SPECIFIED [Suspect]
     Indication: COLONOSCOPY
     Dosage: 90 ML; TOTAL; PO
     Route: 048
     Dates: start: 20060914, end: 20060915
  2. NEURONTIN [Concomitant]
  3. INSULIN [Concomitant]
  4. LIPITOR [Concomitant]
  5. ACCUPRIL [Concomitant]
  6. HYDROCHLOROTHIAZIDE [Concomitant]
  7. CLONAZEPAM [Concomitant]
  8. EFFEXOR [Concomitant]
  9. ZELNORM [Concomitant]
  10. ASPIRIN [Concomitant]
  11. COLACE [Concomitant]
  12. MAGNESIUM SULFATE [Concomitant]
  13. CALCIUM [Concomitant]
  14. VITAMIN A [Concomitant]
  15. FOSAMAX [Concomitant]
  16. DIOVAN /01319601/ [Concomitant]
  17. IODINE [Concomitant]
  18. CT CONTRAST [Concomitant]

REACTIONS (2)
  - NEPHROPATHY [None]
  - RENAL FAILURE ACUTE [None]
